FAERS Safety Report 6273668-5 (Version None)
Quarter: 2009Q3

REPORT INFORMATION
  Report Type: 
  Country: None (occurrence: None)
  Receive Date: 20090720
  Receipt Date: 20090708
  Transmission Date: 20100115
  Serious: Yes (Death)
  Sender: FDA-Public Use
  Company Number: US-PFIZER INC-2009208877

PATIENT
  Sex: Male
  Weight: 67.12 kg

DRUGS (2)
  1. SUTENT [Suspect]
     Indication: METASTATIC MALIGNANT MELANOMA
     Dosage: 50 MG, 1X/DAY
     Dates: start: 20090121, end: 20090414
  2. DACARBAZINE [Concomitant]
     Dosage: 1000 MG/M2, UNK

REACTIONS (2)
  - DISEASE PROGRESSION [None]
  - METASTATIC MALIGNANT MELANOMA [None]
